FAERS Safety Report 14013285 (Version 1)
Quarter: 2017Q3

REPORT INFORMATION
  Report Type: Spontaneous
  Country: CA (occurrence: CA)
  Receive Date: 20170926
  Receipt Date: 20170926
  Transmission Date: 20171128
  Serious: Yes (Other)
  Sender: FDA-Public Use
  Company Number: CA-TEVA-810390ACC

PATIENT
  Age: 72 Year
  Sex: Female

DRUGS (6)
  1. CO DORZOTIMOLOL [Concomitant]
  2. NOVO-TRIAMZIDE [Concomitant]
  3. SANDOZ CIPROFLOXACIN [Suspect]
     Active Substance: CIPROFLOXACIN
     Indication: DIVERTICULITIS
     Dosage: 2 DOSAGE FORMS DAILY;
     Route: 048
  4. LUMIGAN [Concomitant]
     Active Substance: BIMATOPROST
  5. METRONIDAZOLE TABLET 250MG [Suspect]
     Active Substance: METRONIDAZOLE
     Indication: DIVERTICULITIS
     Dosage: 4 DOSAGE FORMS DAILY;
     Route: 048
  6. SYNTHROID - TAB 50MCG [Concomitant]

REACTIONS (2)
  - Mood altered [Recovered/Resolved]
  - Suicidal ideation [Recovered/Resolved]
